FAERS Safety Report 10652267 (Version 1)
Quarter: 2014Q4

REPORT INFORMATION
  Report Type: Spontaneous
  Country: US (occurrence: None)
  Receive Date: 20141212
  Receipt Date: 20141212
  Transmission Date: 20150529
  Serious: Yes (Other)
  Sender: FDA-Public Use
  Company Number: None

PATIENT
  Age: 38 Year
  Sex: Female
  Weight: 76.2 kg

DRUGS (2)
  1. CIPRO [Suspect]
     Active Substance: CIPROFLOXACIN HYDROCHLORIDE
     Indication: PNEUMONIA
     Dosage: 1 TAB, TWICE DAILY, TAKEN BY MOUTH
     Route: 048
     Dates: start: 20141102, end: 20141205
  2. CIPRO [Suspect]
     Active Substance: CIPROFLOXACIN HYDROCHLORIDE
     Indication: URINARY TRACT INFECTION
     Dosage: 1 TAB, TWICE DAILY, TAKEN BY MOUTH
     Route: 048
     Dates: start: 20141102, end: 20141205

REACTIONS (13)
  - Dizziness [None]
  - Palpitations [None]
  - Nausea [None]
  - Tremor [None]
  - Chest discomfort [None]
  - Abdominal pain [None]
  - Irritability [None]
  - Visual impairment [None]
  - Fatigue [None]
  - Muscular weakness [None]
  - Muscle spasms [None]
  - Tachycardia [None]
  - Tinnitus [None]

NARRATIVE: CASE EVENT DATE: 20141207
